FAERS Safety Report 9548937 (Version 2)
Quarter: 2013Q4

REPORT INFORMATION
  Report Type: Spontaneous
  Country: FI (occurrence: FI)
  Receive Date: 20130924
  Receipt Date: 20131011
  Transmission Date: 20140711
  Serious: Yes (Hospitalization, Other)
  Sender: FDA-Public Use
  Company Number: FI-AMGEN-FINSP2013066670

PATIENT
  Age: 45 Year
  Sex: Female

DRUGS (3)
  1. ENBREL [Suspect]
     Indication: RHEUMATOID ARTHRITIS
     Dosage: 50 MG, WEEKLY
     Route: 065
     Dates: start: 201112, end: 201210
  2. METOJECT [Concomitant]
     Dosage: 10 MG, WEEKLY
  3. FOLIC ACID [Concomitant]
     Dosage: 5 MG, WEEKLY

REACTIONS (1)
  - Breast cancer [Unknown]
